FAERS Safety Report 9651432 (Version 2)
Quarter: 2014Q2

REPORT INFORMATION
  Report Type: Spontaneous
  Country: AR (occurrence: AR)
  Receive Date: 20131029
  Receipt Date: 20140401
  Transmission Date: 20141212
  Serious: Yes (Other)
  Sender: FDA-Public Use
  Company Number: AR-AMGEN-ARGSP2013076180

PATIENT
  Age: 52 Year
  Sex: Female

DRUGS (4)
  1. ENBREL [Suspect]
     Indication: PSORIATIC ARTHROPATHY
     Dosage: 50 MG, WEEKLY
     Route: 065
     Dates: start: 20080301
  2. ERVEMIN                            /00113801/ [Concomitant]
     Dosage: UNK
  3. NAPROXEN [Concomitant]
     Dosage: UNK
  4. KETOROLAC [Concomitant]
     Indication: RENAL COLIC
     Dosage: 10 MG, AS NEEDED

REACTIONS (3)
  - Endometrial disorder [Recovered/Resolved]
  - Oral infection [Recovered/Resolved]
  - Injection site pain [Recovered/Resolved]
